FAERS Safety Report 16915230 (Version 1)
Quarter: 2019Q4

REPORT INFORMATION
  Report Type: Spontaneous
  Country: US (occurrence: US)
  Receive Date: 20190822
  Receipt Date: 20190822
  Transmission Date: 20200122
  Serious: No
  Sender: FDA-Public Use
  Company Number: None

PATIENT
  Sex: Female

DRUGS (1)
  1. IMATINIB MESYLATE 400MG TEVA PHARMACEUTICALS USA [Suspect]
     Active Substance: IMATINIB MESYLATE
     Indication: ORAL NEOPLASM
     Route: 048
     Dates: start: 201903

REACTIONS (2)
  - Rash [None]
  - Skin discolouration [None]
